FAERS Safety Report 4784188-9 (Version None)
Quarter: 2005Q3

REPORT INFORMATION
  Report Type: 
  Country: None (occurrence: None)
  Receive Date: 20050928
  Receipt Date: 20050913
  Transmission Date: 20060218
  Serious: Yes (Other)
  Sender: FDA-Public Use
  Company Number: 2005-DE-03698GD

PATIENT
  Sex: Female

DRUGS (2)
  1. FUROSEMIDE [Suspect]
     Indication: PULMONARY HYPERTENSION
  2. NIFEDIPINE [Suspect]
     Indication: PULMONARY HYPERTENSION

REACTIONS (2)
  - GALLOP RHYTHM PRESENT [None]
  - OEDEMA PERIPHERAL [None]
